FAERS Safety Report 12083771 (Version 1)
Quarter: 2016Q1

REPORT INFORMATION
  Report Type: Report from Study
  Country: CA (occurrence: CA)
  Receive Date: 20160217
  Receipt Date: 20160217
  Transmission Date: 20160526
  Serious: Yes (Other)
  Sender: FDA-Public Use
  Company Number: CA-AMGEN-CANSL2016017979

PATIENT
  Age: 83 Year
  Sex: Female

DRUGS (1)
  1. PROLIA [Suspect]
     Active Substance: DENOSUMAB
     Indication: PRODUCT USED FOR UNKNOWN INDICATION
     Dosage: 60 MG/ML, UNK
     Route: 065
     Dates: start: 20140309

REACTIONS (9)
  - Dementia Alzheimer^s type [Unknown]
  - Nausea [Unknown]
  - Diarrhoea [Unknown]
  - Hypertension [Unknown]
  - Arthralgia [Unknown]
  - Abdominal discomfort [Unknown]
  - Influenza [Unknown]
  - Nasopharyngitis [Unknown]
  - Mobility decreased [Unknown]

NARRATIVE: CASE EVENT DATE: 2015
